FAERS Safety Report 10436173 (Version 1)
Quarter: 2014Q3

REPORT INFORMATION
  Report Type: Spontaneous
  Country: US (occurrence: None)
  Receive Date: 20140905
  Receipt Date: 20140905
  Transmission Date: 20150326
  Serious: Yes (Other)
  Sender: FDA-Public Use
  Company Number: None

PATIENT
  Age: 43 Year
  Sex: Female

DRUGS (2)
  1. CYMBALTA GENERIC [Suspect]
     Active Substance: DULOXETINE HYDROCHLORIDE
     Dosage: 60MG  ONE PO DAILY
     Route: 048
  2. CYMBALTA GENERIC [Suspect]
     Active Substance: DULOXETINE HYDROCHLORIDE
     Indication: ANXIETY DISORDER
     Dosage: 30MG ONE PO DAILY
     Route: 048

REACTIONS (5)
  - Tremor [None]
  - Nausea [None]
  - Vomiting [None]
  - Abdominal pain upper [None]
  - Abdominal discomfort [None]

NARRATIVE: CASE EVENT DATE: 20140804
